FAERS Safety Report 17517183 (Version 1)
Quarter: 2020Q1

REPORT INFORMATION
  Report Type: Spontaneous
  Country: US (occurrence: US)
  Receive Date: 20200307
  Receipt Date: 20200307
  Transmission Date: 20200409
  Serious: No
  Sender: FDA-Public Use
  Company Number: None

PATIENT
  Age: 32 Year
  Sex: Male
  Weight: 81 kg

DRUGS (7)
  1. OMEPRAZOLE - 1 CAPSULE/ DAY- 20MG [Concomitant]
  2. FISH OILS [Concomitant]
  3. DEXTROAMPHET SACCHARAT, AMPHET ASPARTATE, DEXTROAMPHET SULFATE AND AMPHET SULFAT [Suspect]
     Active Substance: AMPHETAMINE ASPARTATE\AMPHETAMINE SULFATE\DEXTROAMPHETAMINE SACCHARATE\DEXTROAMPHETAMINE SULFATE
     Indication: ATTENTION DEFICIT/HYPERACTIVITY DISORDER
     Dosage: ?          QUANTITY:75 TABLET(S);OTHER FREQUENCY:2.5/DAY;?
     Route: 048
     Dates: start: 20200306, end: 20200307
  4. MEN^S MULTI-VITAMIN [Concomitant]
  5. POTASSIUM [Concomitant]
     Active Substance: POTASSIUM
  6. CLONAZEPAM - 0.5MG - 3X/DAY [Concomitant]
  7. B6 [Concomitant]
     Active Substance: PYRIDOXINE HYDROCHLORIDE

REACTIONS (3)
  - Product substitution issue [None]
  - Disturbance in attention [None]
  - Therapeutic response decreased [None]

NARRATIVE: CASE EVENT DATE: 20200306
